FAERS Safety Report 6939402-8 (Version None)
Quarter: 2010Q3

REPORT INFORMATION
  Report Type: 
  Country: None (occurrence: None)
  Receive Date: 20100824
  Receipt Date: 20100816
  Transmission Date: 20110219
  Serious: Yes (Other)
  Sender: FDA-Public Use
  Company Number: US-ABBOTT-10P-163-0664180-00

PATIENT
  Age: 54 Year
  Sex: Female

DRUGS (1)
  1. ERYTHROMYCIN [Suspect]
     Indication: PNEUMONIA PRIMARY ATYPICAL
     Dates: start: 19850101

REACTIONS (6)
  - COUGH [None]
  - DIARRHOEA [None]
  - FATIGUE [None]
  - HEPATIC FAILURE [None]
  - JAUNDICE [None]
  - RIB FRACTURE [None]
